FAERS Safety Report 5956030-1 (Version None)
Quarter: 2008Q4

REPORT INFORMATION
  Report Type: 
  Country: None (occurrence: None)
  Receive Date: 20081112
  Receipt Date: 20081027
  Transmission Date: 20090506
  Serious: Yes (Death, Hospitalization, Other)
  Sender: FDA-Public Use
  Company Number: 2008001932

PATIENT
  Age: 56 Year
  Sex: Female

DRUGS (10)
  1. ERLOTINIB (ERLOTINIB) (TABLET) (ERLOTINIB) [Suspect]
     Indication: NON-SMALL CELL LUNG CANCER
     Dosage: ORAL
     Route: 048
     Dates: start: 20080623
  2. BEVACIZUMAB (INJECTION FOR INFUSION) [Suspect]
     Dosage: INTRAVENOUS
     Route: 042
  3. GEMZAR [Suspect]
  4. CARBOPLATIN [Suspect]
  5. AUGMENTIN '125' [Concomitant]
  6. CLARITHROMYCIN [Concomitant]
  7. CEFEPIME [Concomitant]
  8. VANCOMYCIN [Concomitant]
  9. METHOTREXATE [Concomitant]
  10. AMOXICILLIN (AMOXICILLIN)` [Concomitant]

REACTIONS (7)
  - CATHETER SEPSIS [None]
  - CHOLELITHIASIS [None]
  - ENTEROCOCCAL SEPSIS [None]
  - GASTRIC NEOPLASM [None]
  - GASTROINTESTINAL HAEMORRHAGE [None]
  - PANCREATITIS ACUTE [None]
  - PNEUMONIA [None]
